FAERS Safety Report 14941565 (Version 1)
Quarter: 2018Q2

REPORT INFORMATION
  Report Type: Report from Study
  Country: US (occurrence: US)
  Receive Date: 20180526
  Receipt Date: 20180526
  Transmission Date: 20180711
  Serious: Yes (Other)
  Sender: FDA-Public Use
  Company Number: US-SHIRE-US201819132

PATIENT
  Sex: Female

DRUGS (1)
  1. GATTEX [Suspect]
     Active Substance: TEDUGLUTIDE\WATER
     Indication: SHORT-BOWEL SYNDROME
     Dosage: 0.37 ML (3.7 MG), 1X/DAY:QD
     Route: 058
     Dates: start: 20171114

REACTIONS (2)
  - Nausea [Recovering/Resolving]
  - Catheter site extravasation [Recovering/Resolving]
